FAERS Safety Report 10081450 (Version 1)
Quarter: 2014Q2

REPORT INFORMATION
  Report Type: Spontaneous
  Country: FR (occurrence: FR)
  Receive Date: 20140416
  Receipt Date: 20140416
  Transmission Date: 20141212
  Serious: Yes (Hospitalization)
  Sender: FDA-Public Use
  Company Number: FR-PFIZER INC-2014105749

PATIENT
  Age: 44 Year
  Sex: Female

DRUGS (1)
  1. CORDARONE [Suspect]
     Dosage: UNK
     Route: 048
     Dates: start: 201312, end: 20131215

REACTIONS (2)
  - Normochromic normocytic anaemia [Recovering/Resolving]
  - Hyperthyroidism [Unknown]
